FAERS Safety Report 13262125 (Version 2)
Quarter: 2017Q1

REPORT INFORMATION
  Report Type: Spontaneous
  Country: AU (occurrence: AU)
  Receive Date: 20170222
  Receipt Date: 20170224
  Transmission Date: 20170428
  Serious: Yes (Other)
  Sender: FDA-Public Use
  Company Number: AU-BEH-2017078182

PATIENT
  Age: 46 Year
  Sex: Female
  Weight: 54 kg

DRUGS (3)
  1. HIZENTRA [Suspect]
     Active Substance: HUMAN IMMUNOGLOBULIN G
     Dosage: 8 G, UNK
     Route: 058
     Dates: start: 20170216, end: 20170216
  2. HIZENTRA [Suspect]
     Active Substance: HUMAN IMMUNOGLOBULIN G
     Dosage: 8 G, TOT
     Route: 058
     Dates: start: 20170208, end: 20170208
  3. HIZENTRA [Suspect]
     Active Substance: HUMAN IMMUNOGLOBULIN G
     Indication: IMMUNODEFICIENCY COMMON VARIABLE
     Dosage: 8 G, QW
     Route: 058
     Dates: start: 20170201, end: 20170201

REACTIONS (28)
  - Infusion site swelling [Recovered/Resolved]
  - Discomfort [Unknown]
  - Infusion site swelling [Recovered/Resolved]
  - Nausea [Unknown]
  - Infusion site hypersensitivity [Recovered/Resolved]
  - Pain [Unknown]
  - Headache [Unknown]
  - Swelling [Not Recovered/Not Resolved]
  - Arthralgia [Unknown]
  - Pain [Unknown]
  - Swelling [Unknown]
  - Vomiting [Unknown]
  - Infusion site swelling [Recovered/Resolved]
  - Pain [Not Recovered/Not Resolved]
  - Sputum discoloured [Unknown]
  - Headache [Not Recovered/Not Resolved]
  - Discomfort [Not Recovered/Not Resolved]
  - Infusion site pruritus [Recovered/Resolved]
  - Infusion site erythema [Recovered/Resolved]
  - Infusion site bruising [Recovered/Resolved]
  - Discomfort [Unknown]
  - Infusion site urticaria [Recovered/Resolved]
  - Nausea [Not Recovered/Not Resolved]
  - Nasal congestion [Unknown]
  - Lower respiratory tract infection [Unknown]
  - Vomiting [Not Recovered/Not Resolved]
  - Injection site atrophy [Recovered/Resolved]
  - Headache [Unknown]

NARRATIVE: CASE EVENT DATE: 201702
